FAERS Safety Report 9859658 (Version 2)
Quarter: 2014Q1

REPORT INFORMATION
  Report Type: Report from Study
  Country: FR (occurrence: FR)
  Receive Date: 20140131
  Receipt Date: 20140207
  Transmission Date: 20141002
  Serious: Yes (Other)
  Sender: FDA-Public Use
  Company Number: PHHY2014FR011675

PATIENT
  Age: 67 Year
  Sex: Female

DRUGS (10)
  1. ACLASTA/ZOLEDRONATE [Suspect]
     Indication: OSTEOPOROTIC FRACTURE
     Dosage: UNK
     Route: 042
     Dates: start: 20111129
  2. ACLASTA/ZOLEDRONATE [Suspect]
     Dosage: UNK
     Route: 042
     Dates: start: 20121123
  3. TAREG [Concomitant]
     Indication: HYPERTENSION
     Dosage: UNK
     Dates: start: 1991
  4. NEURONTIN [Concomitant]
     Dosage: UNK
     Dates: start: 2011, end: 201207
  5. VERSATIS [Concomitant]
     Dosage: UNK
     Dates: start: 20120327, end: 20130709
  6. CALCITONINE [Concomitant]
     Dosage: UNK
     Dates: start: 20120903, end: 201302
  7. FORSTEO [Concomitant]
     Dosage: UNK
     Dates: start: 201304
  8. BI-PROFENID [Concomitant]
     Dosage: UNK
  9. CACIT                              /00944201/ [Concomitant]
     Dosage: UNK BEFORE STUDY
  10. RIVOTRIL [Concomitant]
     Dosage: UNK BEFORE STUDY

REACTIONS (3)
  - Spinal fracture [Recovered/Resolved with Sequelae]
  - Traumatic fracture [Recovered/Resolved with Sequelae]
  - Fall [Recovered/Resolved with Sequelae]
